FAERS Safety Report 17874011 (Version 1)
Quarter: 2020Q2

REPORT INFORMATION
  Report Type: Spontaneous
  Country: US (occurrence: US)
  Receive Date: 20200609
  Receipt Date: 20200609
  Transmission Date: 20200714
  Serious: Yes (Hospitalization, Other)
  Sender: FDA-Public Use
  Company Number: US-SA-2020SA143322

PATIENT

DRUGS (2)
  1. LANTUS [Suspect]
     Active Substance: INSULIN GLARGINE
     Indication: TYPE 2 DIABETES MELLITUS
     Dosage: 50 IU, QD
     Route: 065
  2. INSULIN ASPART [Suspect]
     Active Substance: INSULIN ASPART

REACTIONS (8)
  - Haemoptysis [Unknown]
  - Thrombosis [Unknown]
  - Injection site pruritus [Unknown]
  - Drug ineffective [Unknown]
  - Collateral circulation [Unknown]
  - Arterial rupture [Unknown]
  - Injection site pain [Unknown]
  - Blood glucose increased [Unknown]
